FAERS Safety Report 8006178-5 (Version None)
Quarter: 2011Q4

REPORT INFORMATION
  Report Type: 
  Country: None (occurrence: None)
  Receive Date: 20111226
  Receipt Date: 20111214
  Transmission Date: 20120403
  Serious: No
  Sender: FDA-Public Use
  Company Number: PHHY2011US16894

PATIENT
  Sex: Female

DRUGS (7)
  1. LIPITOR [Concomitant]
     Dosage: 10 MG, UNK
  2. PREMPRO [Concomitant]
     Dosage: 0.3 OT, UNK
  3. LISINOPRIL [Concomitant]
     Dosage: 40 MG, UNK
  4. TASIGNA [Suspect]
     Indication: CHRONIC MYELOID LEUKAEMIA
     Dosage: 200 MG, BID
     Route: 048
     Dates: start: 20101118
  5. PREMPRO [Concomitant]
     Dosage: 1.5 UKN, UNK
  6. VITAMIN B COMPLEX CAP [Concomitant]
     Dosage: 50000 IU, UNK
  7. METOPROLOL SUCCINATE [Concomitant]
     Dosage: 50 MG

REACTIONS (5)
  - ALOPECIA [None]
  - PRURITUS [None]
  - IMPAIRED GASTRIC EMPTYING [None]
  - NEURALGIA [None]
  - MUSCLE SPASMS [None]
